FAERS Safety Report 10056261 (Version 2)
Quarter: 2014Q2

REPORT INFORMATION
  Report Type: Spontaneous
  Country: US (occurrence: None)
  Receive Date: 20140401
  Receipt Date: 20140410
  Transmission Date: 20141212
  Serious: Yes (Life-Threatening, Hospitalization)
  Sender: FDA-Public Use
  Company Number: 2014-US-TEVA-00001

PATIENT
  Age: 48 Year
  Sex: Male
  Weight: 66.6 kg

DRUGS (1)
  1. ARIPIPRAZOLE [Suspect]
     Indication: SCHIZOPHRENIA
     Dosage: 10 MG ORAL SINGLE DOSE
     Route: 048
     Dates: start: 20140314

REACTIONS (19)
  - Upper gastrointestinal haemorrhage [None]
  - Mallory-Weiss syndrome [None]
  - Gastritis [None]
  - Duodenitis [None]
  - Sinus tachycardia [None]
  - Left atrial dilatation [None]
  - Blood calcium decreased [None]
  - Haemoglobin decreased [None]
  - Haematocrit decreased [None]
  - Red blood cell count decreased [None]
  - Neutrophil count increased [None]
  - Blood sodium decreased [None]
  - Blood chloride decreased [None]
  - Carbon dioxide decreased [None]
  - Blood glucose increased [None]
  - Aspartate aminotransferase increased [None]
  - Blood bilirubin increased [None]
  - Blood creatine phosphokinase increased [None]
  - Alcohol abuse [None]
